FAERS Safety Report 6996234-2 (Version None)
Quarter: 2010Q3

REPORT INFORMATION
  Report Type: 
  Country: None (occurrence: None)
  Receive Date: 20100918
  Receipt Date: 20090317
  Transmission Date: 20110219
  Serious: Yes (Life-Threatening, Hospitalization)
  Sender: FDA-Public Use
  Company Number: US-WYE-H07836209

PATIENT
  Sex: Female
  Weight: 136 kg

DRUGS (8)
  1. EFFEXOR XR [Suspect]
     Indication: DEPRESSION
     Route: 048
     Dates: end: 20090115
  2. NEXIUM [Concomitant]
     Indication: GASTROOESOPHAGEAL REFLUX DISEASE
     Route: 048
  3. FLAGYL [Concomitant]
     Route: 048
     Dates: start: 20081208
  4. KLONOPIN [Concomitant]
     Indication: ANXIETY
     Dosage: 0.5 MG IN AM AND 1 MG IN THE PM
     Route: 048
  5. TOPAMAX [Concomitant]
     Route: 048
  6. VALTREX [Concomitant]
     Route: 048
  7. SEROQUEL [Concomitant]
     Indication: DEPRESSION
     Dosage: 100-300  MG AT BED TIME
     Route: 048
     Dates: start: 20081231, end: 20090115
  8. LEVOXYL [Concomitant]
     Indication: HYPOTHYROIDISM
     Dosage: 25 MCG DAILY
     Route: 048

REACTIONS (2)
  - BUNDLE BRANCH BLOCK RIGHT [None]
  - TORSADE DE POINTES [None]
